FAERS Safety Report 18692928 (Version 6)
Quarter: 2023Q2

REPORT INFORMATION
  Report Type: Other
  Country: CA (occurrence: None)
  Receive Date: 20210104
  Receipt Date: 20230421
  Transmission Date: 20230721
  Serious: No
  Sender: FDA-Public Use
  Company Number: CA-ROCHE-2739318

PATIENT
  Age: 39 Year
  Sex: Female

DRUGS (2)
  1. OCREVUS [Suspect]
     Active Substance: OCRELIZUMAB
     Indication: Relapsing-remitting multiple sclerosis
     Dosage: CONCENTRATE FOR INTRAVENOUS INFUSION, 300 MG AT DAY 0 AND 14, THEN 600 MG EVERY 6 MONTH.
     Route: 042
     Dates: start: 20190723
  2. OCREVUS [Suspect]
     Active Substance: OCRELIZUMAB
     Dosage: CONCENTRATE FOR INTRAVENOUS INFUSION, 300 MG AT DAY 0 AND 14, THEN 600 MG EVERY 6 MONTH.
     Route: 042

REACTIONS (4)
  - COVID-19 [Recovered/Resolved]
  - Fatigue [Not Recovered/Not Resolved]
  - Breast disorder [Unknown]
  - Asthenia [Not Recovered/Not Resolved]

NARRATIVE: CASE EVENT DATE: 20201212
